FAERS Safety Report 6278696-1 (Version None)
Quarter: 2009Q3

REPORT INFORMATION
  Report Type: 
  Country: None (occurrence: None)
  Receive Date: 20090721
  Receipt Date: 20090710
  Transmission Date: 20100115
  Serious: Yes (Other)
  Sender: FDA-Public Use
  Company Number: 2009S1005373

PATIENT
  Age: 21 Year
  Sex: Female

DRUGS (2)
  1. AMNESTEEM [Suspect]
     Dosage: ORAL, 40 MG; DAILY; ORAL
     Route: 048
     Dates: start: 20090220, end: 20090324
  2. AMNESTEEM [Suspect]
     Dosage: ORAL, 40 MG; DAILY; ORAL
     Route: 048
     Dates: start: 20080101

REACTIONS (2)
  - DRUG EXPOSURE DURING PREGNANCY [None]
  - PREGNANCY [None]
